FAERS Safety Report 5218168-6 (Version None)
Quarter: 2007Q1

REPORT INFORMATION
  Report Type: 
  Country: None (occurrence: None)
  Receive Date: 20061130
  Receipt Date: 20060915
  Transmission Date: 20070707
  Serious: Yes (Hospitalization)
  Sender: FDA-Public Use
  Company Number: US200603000213

PATIENT
  Age: 46 Year
  Sex: Male

DRUGS (1)
  1. ZYPREXA [Suspect]
     Dates: start: 19980801, end: 20030901

REACTIONS (4)
  - DIABETES MELLITUS INSULIN-DEPENDENT [None]
  - GASTRITIS [None]
  - PANCREATITIS [None]
  - WEIGHT INCREASED [None]
